FAERS Safety Report 24098752 (Version 1)
Quarter: 2024Q3

REPORT INFORMATION
  Report Type: Spontaneous
  Country: US (occurrence: US)
  Receive Date: 20240716
  Receipt Date: 20240716
  Transmission Date: 20241016
  Serious: No
  Sender: NOVO NORDISK
  Company Number: US-NOVOPROD-1178211

PATIENT
  Sex: Female

DRUGS (1)
  1. OZEMPIC [Suspect]
     Active Substance: SEMAGLUTIDE
     Indication: Type 2 diabetes mellitus
     Dosage: 0.25 MG, QW
     Route: 058

REACTIONS (6)
  - Corrective lens user [Unknown]
  - Unevaluable event [Unknown]
  - Glycosylated haemoglobin increased [Unknown]
  - Product packaging quantity issue [Unknown]
  - Product communication issue [Unknown]
  - Wrong technique in device usage process [Unknown]
